FAERS Safety Report 23905970 (Version 2)
Quarter: 2024Q3

REPORT INFORMATION
  Report Type: Report from Study
  Country: US (occurrence: US)
  Receive Date: 20240527
  Receipt Date: 20240725
  Transmission Date: 20241017
  Serious: No
  Sender: SANOFI AVENTIS
  Company Number: US-SANOFI-02058706

PATIENT
  Age: 50 Year
  Sex: Male

DRUGS (2)
  1. AGALSIDASE BETA [Suspect]
     Active Substance: AGALSIDASE BETA
     Indication: Fabry^s disease
     Dosage: 95 (UNITS NOT PROVIDED), QOW
     Route: 042
     Dates: start: 200307, end: 20240517
  2. AGALSIDASE BETA [Suspect]
     Active Substance: AGALSIDASE BETA
     Dosage: 95 (UNITS NOT PROVIDED), QOW
     Route: 042

REACTIONS (2)
  - Skin infection [Unknown]
  - Malaise [Unknown]

NARRATIVE: CASE EVENT DATE: 20240501
